FAERS Safety Report 7378661-7 (Version None)
Quarter: 2011Q1

REPORT INFORMATION
  Report Type: 
  Country: None (occurrence: None)
  Receive Date: 20110328
  Receipt Date: 20110317
  Transmission Date: 20110831
  Serious: Yes (Hospitalization)
  Sender: FDA-Public Use
  Company Number: US-ASTRAZENECA-2011SE15241

PATIENT
  Age: 55 Year
  Sex: Female

DRUGS (11)
  1. ENTOCORT EC [Suspect]
     Indication: CROHN'S DISEASE
     Route: 048
     Dates: start: 20060101
  2. LOMOTIL [Concomitant]
     Indication: DIARRHOEA
     Dosage: AS NEEDED
  3. IMURAN [Concomitant]
     Indication: CROHN'S DISEASE
  4. VITAMIN D [Concomitant]
  5. LEVOTHYROXINE SODIUM [Concomitant]
     Indication: THYROID DISORDER
  6. PHENERGAN [Concomitant]
     Indication: NAUSEA
     Dosage: AS NEEDED
  7. VICODIN [Concomitant]
     Indication: PAIN
  8. VICODIN [Concomitant]
     Indication: DIARRHOEA
  9. KLONOPIN [Concomitant]
     Indication: SLEEP DISORDER
     Dosage: AS NEEDED
  10. CALCIUM WITH VITAMIN D [Concomitant]
  11. VITAMIN B-12 [Concomitant]
     Dosage: MONTHLY
     Route: 050

REACTIONS (6)
  - OSTEOPOROSIS [None]
  - COMPRESSION FRACTURE [None]
  - DIARRHOEA [None]
  - NAUSEA [None]
  - INAPPROPRIATE SCHEDULE OF DRUG ADMINISTRATION [None]
  - PAIN IN EXTREMITY [None]
